FAERS Safety Report 18189510 (Version 2)
Quarter: 2020Q4

REPORT INFORMATION
  Report Type: Spontaneous
  Country: IT (occurrence: IT)
  Receive Date: 20200825
  Receipt Date: 20201020
  Transmission Date: 20210113
  Serious: Yes (Hospitalization, Other)
  Sender: FDA-Public Use
  Company Number: IT-SUN PHARMACEUTICAL INDUSTRIES LTD-2020RR-258484

PATIENT
  Age: 59 Year
  Sex: Female

DRUGS (4)
  1. QUETIAPINE FUMARATE. [Suspect]
     Active Substance: QUETIAPINE FUMARATE
     Indication: PERSONALITY DISORDER
  2. TICLOPIDINE [Concomitant]
     Active Substance: TICLOPIDINE
     Indication: PRODUCT USED FOR UNKNOWN INDICATION
     Dosage: UNK
     Route: 065
  3. QUETIAPINE FUMARATE. [Suspect]
     Active Substance: QUETIAPINE FUMARATE
     Dosage: 1 DOSAGE FORM, DAILY
     Route: 048
     Dates: start: 20200101
  4. LORAZEPAM. [Suspect]
     Active Substance: LORAZEPAM
     Indication: AGGRESSION
     Dosage: 1 DOSAGE FORM, DAILY
     Route: 048
     Dates: start: 20151116

REACTIONS (4)
  - Intentional self-injury [Unknown]
  - Drug ineffective [Unknown]
  - Aggression [Unknown]
  - Alcohol poisoning [Unknown]

NARRATIVE: CASE EVENT DATE: 20200704
